FAERS Safety Report 19088187 (Version 1)
Quarter: 2021Q2

REPORT INFORMATION
  Report Type: Report from Study
  Country: FR (occurrence: FR)
  Receive Date: 20210402
  Receipt Date: 20210402
  Transmission Date: 20210717
  Serious: Yes (Other)
  Sender: FDA-Public Use
  Company Number: FR-GLAXOSMITHKLINE-FR2020EME245411

PATIENT
  Age: 65 Year
  Sex: Female
  Weight: 70 kg

DRUGS (15)
  1. BINOCRIT [Concomitant]
     Active Substance: ERYTHROPOIETIN
     Dosage: 30000 1X (1 FLASK SC ONCE PER WEEK)
  2. LEVOTHYROX [Concomitant]
     Active Substance: LEVOTHYROXINE
     Dosage: 75 UG, QD
  3. BELANTAMAB MAFODOTIN. [Suspect]
     Active Substance: BELANTAMAB MAFODOTIN
     Dosage: 1.8 MG/KG, CYC
     Route: 042
     Dates: start: 20201119
  4. AMOXICILLINE [Concomitant]
     Active Substance: AMOXICILLIN
     Dosage: 1 G, QD
  5. BELANTAMAB MAFODOTIN. [Suspect]
     Active Substance: BELANTAMAB MAFODOTIN
     Dosage: 1.8 MG/KG, CYC
     Route: 042
     Dates: start: 20201026
  6. BELANTAMAB MAFODOTIN. [Suspect]
     Active Substance: BELANTAMAB MAFODOTIN
     Dosage: UNK, CYC
     Route: 042
     Dates: start: 20201230, end: 20201230
  7. VALACICLOVIR [Concomitant]
     Active Substance: VALACYCLOVIR HYDROCHLORIDE
     Dosage: 500 MG, QD
  8. LERCANIDIPINE [Concomitant]
     Active Substance: LERCANIDIPINE
     Dosage: 20 MG, QD (1 MORNING 1 EVENING)
  9. BELANTAMAB MAFODOTIN. [Suspect]
     Active Substance: BELANTAMAB MAFODOTIN
     Indication: PLASMA CELL MYELOMA
     Dosage: 2.5 MG/KG
     Route: 042
     Dates: start: 20200824
  10. BELANTAMAB MAFODOTIN. [Suspect]
     Active Substance: BELANTAMAB MAFODOTIN
     Dosage: 2.5 MG/KG
     Route: 042
     Dates: start: 20200914
  11. PANTOPRAZOLE [Concomitant]
     Active Substance: PANTOPRAZOLE
     Dosage: 20 MG, QD
  12. SOTALOL. [Concomitant]
     Active Substance: SOTALOL
     Dosage: 160 MG, QD (1 MORNING AT 80 MG/ 1 EVENING AT 80 MG)
  13. FOLINORAL [Concomitant]
     Active Substance: LEUCOVORIN CALCIUM
     Dosage: 25 MG (ON SUNDAY)
  14. BELANTAMAB MAFODOTIN. [Suspect]
     Active Substance: BELANTAMAB MAFODOTIN
     Dosage: 2.5 MG/KG
     Route: 042
     Dates: start: 20201005
  15. BACTRIM [Concomitant]
     Active Substance: SULFAMETHOXAZOLE\TRIMETHOPRIM
     Dosage: 160 MG (EVERY MONDAY, WEDNESDAY AND FRIDAY)

REACTIONS (7)
  - Corneal deposits [Unknown]
  - Product prescribing error [Unknown]
  - Ocular toxicity [Recovering/Resolving]
  - Incorrect dose administered [Unknown]
  - Corneal deposits [Not Recovered/Not Resolved]
  - Corneal lesion [Unknown]
  - Plasma cell myeloma [Unknown]

NARRATIVE: CASE EVENT DATE: 20201005
